FAERS Safety Report 13794902 (Version 2)
Quarter: 2017Q4

REPORT INFORMATION
  Report Type: Spontaneous
  Country: FR (occurrence: FR)
  Receive Date: 20170726
  Receipt Date: 20171109
  Transmission Date: 20180320
  Serious: Yes (Hospitalization)
  Sender: FDA-Public Use
  Company Number: FR-AUROBINDO-AUR-APL-2017-37365

PATIENT
  Age: 33 Year
  Sex: Female

DRUGS (1)
  1. TRAMADOL ARROW LP PROLONGED-RELEASE CAPSULE, HARD 100MG [Suspect]
     Active Substance: TRAMADOL HYDROCHLORIDE
     Indication: BACK PAIN
     Dosage: 2 DF, 3 TIMES A DAY
     Route: 048
     Dates: start: 20170620, end: 20170620

REACTIONS (6)
  - Dry mouth [Recovered/Resolved]
  - Dyspnoea [Recovered/Resolved]
  - Somnolence [Recovered/Resolved]
  - Drug dispensing error [Recovered/Resolved]
  - Asthenia [Recovered/Resolved]
  - Medication error [Recovered/Resolved]

NARRATIVE: CASE EVENT DATE: 20170621
